FAERS Safety Report 8563907-X (Version None)
Quarter: 2012Q3

REPORT INFORMATION
  Report Type: 
  Country: None (occurrence: None)
  Receive Date: 20120803
  Receipt Date: 20120801
  Transmission Date: 20120928
  Serious: No
  Sender: FDA-Public Use
  Company Number: US-BAYER-2012-077967

PATIENT
  Sex: Female
  Weight: 72.562 kg

DRUGS (7)
  1. BETASERON [Suspect]
     Dosage: 0.3 MG, QOD
     Route: 058
  2. ADVIL PM [Concomitant]
     Dosage: 200-250, MG
     Route: 048
  3. NEOCON [Concomitant]
     Dosage: 1/35-28
     Route: 048
  4. OXYBUTYNIN [Concomitant]
     Dosage: 5 MG, UNK
     Route: 048
  5. NALTREXONE HYDROCHLORIDE [Concomitant]
     Dosage: 50 MG, UNK
  6. MULTIVITAMIN PREPARATION + MINERAL SUPPLEMENT [Concomitant]
     Dosage: UNK
     Route: 048
  7. DULCOLAX [Concomitant]
     Dosage: 5 MG, EC
     Route: 048

REACTIONS (3)
  - INJECTION SITE REACTION [None]
  - INJECTION SITE MASS [None]
  - INJECTION SITE ERYTHEMA [None]
